FAERS Safety Report 13582871 (Version 1)
Quarter: 2017Q2

REPORT INFORMATION
  Report Type: Spontaneous
  Country: PL (occurrence: PL)
  Receive Date: 20170525
  Receipt Date: 20170525
  Transmission Date: 20170830
  Serious: Yes (Life-Threatening, Other)
  Sender: FDA-Public Use
  Company Number: PHHY2017PL072062

PATIENT
  Age: 34 Year
  Sex: Male

DRUGS (16)
  1. CISPLATIN. [Suspect]
     Active Substance: CISPLATIN
     Indication: NASOPHARYNGEAL CANCER
     Route: 065
     Dates: start: 200909
  2. CISPLATIN. [Suspect]
     Active Substance: CISPLATIN
     Dosage: UNK
     Route: 065
     Dates: start: 201205, end: 201210
  3. CISPLATIN. [Suspect]
     Active Substance: CISPLATIN
     Route: 065
     Dates: start: 201303
  4. 5-FLUOROURACIL [Suspect]
     Active Substance: FLUOROURACIL
     Indication: NASOPHARYNGEAL CANCER
     Route: 065
     Dates: start: 200909
  5. GEMCITABINE [Suspect]
     Active Substance: GEMCITABINE\GEMCITABINE HYDROCHLORIDE
     Indication: NASOPHARYNGEAL CANCER
     Route: 065
     Dates: start: 201303
  6. 5-FLUOROURACIL [Suspect]
     Active Substance: FLUOROURACIL
     Route: 065
     Dates: start: 201009
  7. DOCETAXEL. [Suspect]
     Active Substance: DOCETAXEL
     Indication: METASTASES TO LYMPH NODES
  8. DOCETAXEL. [Suspect]
     Active Substance: DOCETAXEL
     Indication: METASTASES TO BONE
  9. PACLITAXEL. [Suspect]
     Active Substance: PACLITAXEL
     Indication: NASOPHARYNGEAL CANCER
     Dosage: 80 MG/M2, QW
     Route: 065
  10. PACLITAXEL. [Suspect]
     Active Substance: PACLITAXEL
     Indication: METASTASES TO LYMPH NODES
  11. 5-FLUOROURACIL [Suspect]
     Active Substance: FLUOROURACIL
     Route: 065
     Dates: start: 201205, end: 201210
  12. DOCETAXEL. [Suspect]
     Active Substance: DOCETAXEL
     Indication: NASOPHARYNGEAL CANCER
     Route: 065
     Dates: start: 201108, end: 201112
  13. GEMCITABINE [Suspect]
     Active Substance: GEMCITABINE\GEMCITABINE HYDROCHLORIDE
     Dosage: UNK
     Route: 065
     Dates: start: 201409
  14. CETUXIMAB. [Suspect]
     Active Substance: CETUXIMAB
     Indication: METASTASES TO LYMPH NODES
     Route: 065
     Dates: end: 201302
  15. CISPLATIN. [Suspect]
     Active Substance: CISPLATIN
     Route: 065
     Dates: start: 201409
  16. CETUXIMAB. [Suspect]
     Active Substance: CETUXIMAB
     Indication: NASOPHARYNGEAL CANCER
     Route: 065
     Dates: start: 201205, end: 201210

REACTIONS (7)
  - Thrombocytopenia [Recovered/Resolved]
  - Drug effect incomplete [Unknown]
  - Condition aggravated [Unknown]
  - Anaemia [Recovered/Resolved]
  - Pericardial effusion [Unknown]
  - Nasopharyngeal cancer [Unknown]
  - Disease progression [Unknown]
